FAERS Safety Report 8949058 (Version 1)
Quarter: 2012Q4

REPORT INFORMATION
  Report Type: 
  Country: GB (occurrence: GB)
  Receive Date: 20121206
  Receipt Date: 20121206
  Transmission Date: 20130627
  Serious: Yes (Hospitalization)
  Sender: FDA-Public Use
  Company Number: GB-BIOGENIDEC-2012BI056091

PATIENT
  Age: 54 Year
  Sex: Female

DRUGS (1)
  1. AVONEX [Suspect]
     Indication: PRODUCT USED FOR UNKNOWN INDICATION
     Route: 030

REACTIONS (9)
  - Hip arthroplasty [Not Recovered/Not Resolved]
  - Drug dose omission [Unknown]
  - Hypotension [Not Recovered/Not Resolved]
  - Transfusion [Unknown]
  - Oedema [Not Recovered/Not Resolved]
  - Wound secretion [Not Recovered/Not Resolved]
  - Pyrexia [Unknown]
  - Headache [Unknown]
  - Influenza like illness [Unknown]
